FAERS Safety Report 11599445 (Version 1)
Quarter: 2015Q3

REPORT INFORMATION
  Report Type: Spontaneous
  Country: US (occurrence: US)
  Receive Date: 20150916
  Receipt Date: 20150916
  Transmission Date: 20151125
  Serious: No
  Sender: FDA-Public Use
  Company Number: US-ELI_LILLY_AND_COMPANY-US200711004457

PATIENT
  Age: 78 Year
  Sex: Female

DRUGS (3)
  1. EVISTA [Concomitant]
     Active Substance: RALOXIFENE HYDROCHLORIDE
  2. FORTEO [Suspect]
     Active Substance: TERIPARATIDE
     Indication: OSTEOPOROSIS
     Dosage: UNK D/F, UNKNOWN
     Dates: start: 20071114, end: 20071121
  3. CALCIUM [Concomitant]
     Active Substance: CALCIUM
     Dosage: 1200 MG, DAILY (1/D)

REACTIONS (6)
  - Dyspepsia [Recovered/Resolved]
  - Flatulence [Recovered/Resolved]
  - Fatigue [Recovered/Resolved]
  - Nausea [Recovered/Resolved]
  - Frustration [Not Recovered/Not Resolved]
  - Irritability [Recovered/Resolved]

NARRATIVE: CASE EVENT DATE: 200711
